FAERS Safety Report 9129506 (Version 1)
Quarter: 2013Q1

REPORT INFORMATION
  Report Type: Spontaneous
  Country: US (occurrence: US)
  Receive Date: 20130125
  Receipt Date: 20130125
  Transmission Date: 20140127
  Serious: Yes (Other)
  Sender: FDA-Public Use
  Company Number: US-BAYER-2013-007378

PATIENT
  Age: 64 Year
  Sex: Male
  Weight: 83.9 kg

DRUGS (7)
  1. ALKA-SELTZER PLUS FLU FORMULA [Suspect]
     Indication: INFLUENZA
     Dosage: 2 DF, TID
     Route: 048
     Dates: start: 20130106, end: 20130115
  2. ALKA-SELTZER PLUS COLD AND SINUS [Suspect]
     Indication: INFLUENZA
     Dosage: 2 DF, QD
     Route: 048
     Dates: start: 20130114, end: 20130115
  3. HYDROCODONE [Concomitant]
  4. JANUVIA [Concomitant]
  5. OMEPRAZOLE [Concomitant]
  6. CENTRUM SILVER [Concomitant]
  7. INSULIN [Concomitant]

REACTIONS (4)
  - Ageusia [Not Recovered/Not Resolved]
  - Anosmia [Not Recovered/Not Resolved]
  - Asthenia [Not Recovered/Not Resolved]
  - Drug ineffective [None]
